FAERS Safety Report 17566162 (Version 3)
Quarter: 2021Q3

REPORT INFORMATION
  Report Type: Spontaneous
  Country: IN (occurrence: IN)
  Receive Date: 20200320
  Receipt Date: 20210830
  Transmission Date: 20211014
  Serious: Yes (Other)
  Sender: FDA-Public Use
  Company Number: IN-PFIZER INC-2019401614

PATIENT
  Age: 47 Year
  Sex: Male

DRUGS (1)
  1. CRIZALK [Suspect]
     Active Substance: CRIZOTINIB
     Indication: LUNG CANCER METASTATIC
     Dosage: 250 MG, 2X/DAY
     Route: 048
     Dates: start: 20190821, end: 20210802

REACTIONS (6)
  - Neoplasm progression [Unknown]
  - Brain scan abnormal [Unknown]
  - Liver scan abnormal [Unknown]
  - Fluid retention [Unknown]
  - Pulmonary oedema [Unknown]
  - Substance dependence [Unknown]
